FAERS Safety Report 17657433 (Version 3)
Quarter: 2020Q2

REPORT INFORMATION
  Report Type: Other
  Country: CA (occurrence: CA)
  Receive Date: 20200410
  Receipt Date: 20200511
  Transmission Date: 20200713
  Serious: Yes (Hospitalization, Other)
  Sender: FDA-Public Use
  Company Number: CA-ASCEND THERAPEUTICS US, LLC-2082665

PATIENT
  Age: 44 Year
  Sex: Female

DRUGS (5)
  1. ESTROGEL [Suspect]
     Active Substance: ESTRADIOL
     Indication: HORMONE REPLACEMENT THERAPY
     Route: 062
     Dates: start: 201611
  2. ESTROGEL [Suspect]
     Active Substance: ESTRADIOL
  3. PROMETRIUM [Suspect]
     Active Substance: PROGESTERONE
     Dates: start: 20190605
  4. ESTROGEL [Suspect]
     Active Substance: ESTRADIOL
  5. PROMETRIUM [Suspect]
     Active Substance: PROGESTERONE
     Route: 048
     Dates: start: 201905

REACTIONS (8)
  - Malaise [Unknown]
  - Off label use [Unknown]
  - Uterine polyp [Unknown]
  - Uterine haemorrhage [Unknown]
  - Adverse event [Unknown]
  - Anxiety [Unknown]
  - Metrorrhagia [Unknown]
  - Incorrect dose administered [Unknown]

NARRATIVE: CASE EVENT DATE: 201611
